FAERS Safety Report 6786387-3 (Version None)
Quarter: 2010Q2

REPORT INFORMATION
  Report Type: 
  Country: None (occurrence: None)
  Receive Date: 20100623
  Receipt Date: 20100617
  Transmission Date: 20101027
  Serious: Yes (Hospitalization)
  Sender: FDA-Public Use
  Company Number: DK-WYE-G06290310

PATIENT
  Sex: Female
  Weight: 58 kg

DRUGS (6)
  1. EFFEXOR [Suspect]
     Indication: DEPRESSION
     Route: 048
     Dates: start: 20090304, end: 20100503
  2. PREDNISOLONE [Concomitant]
  3. FEMANOR [Concomitant]
     Route: 048
  4. FENTANYL [Concomitant]
     Indication: PAIN
     Route: 062
  5. IMOZOP [Concomitant]
     Indication: SLEEP DISORDER
     Dosage: 7.5 MG EVERY
     Route: 048
  6. SINGULAIR [Concomitant]
     Indication: CHRONIC OBSTRUCTIVE PULMONARY DISEASE
     Route: 048

REACTIONS (5)
  - CONFUSIONAL STATE [None]
  - FALL [None]
  - HALLUCINATION [None]
  - NIGHTMARE [None]
  - RESTLESSNESS [None]
